FAERS Safety Report 6920639-9 (Version None)
Quarter: 2010Q3

REPORT INFORMATION
  Report Type: 
  Country: None (occurrence: None)
  Receive Date: 20100812
  Receipt Date: 20100810
  Transmission Date: 20110219
  Serious: Yes (Death)
  Sender: FDA-Public Use
  Company Number: JP-BAYER-201013775BYL

PATIENT
  Age: 64 Year
  Sex: Male

DRUGS (10)
  1. NEXAVAR [Suspect]
     Indication: HEPATIC NEOPLASM MALIGNANT
     Dosage: UNIT DOSE: 200 MG
     Route: 048
     Dates: start: 20100325, end: 20100514
  2. BARACLUDE [Concomitant]
     Route: 048
     Dates: start: 20091209
  3. PROHEPARUM [Concomitant]
     Route: 048
     Dates: start: 20091209
  4. URSO 250 [Concomitant]
     Route: 048
     Dates: start: 20091209
  5. ULCERLMIN [Concomitant]
     Route: 048
     Dates: start: 20091209
  6. EBASTEL OD [Concomitant]
     Route: 048
     Dates: start: 20100123
  7. NEOMALLERMIN TR [Concomitant]
     Route: 048
     Dates: start: 20100123
  8. RABEPRAZOLE SODIUM [Concomitant]
     Route: 048
     Dates: start: 20100309
  9. PROMAC [Concomitant]
     Route: 048
     Dates: start: 20100309
  10. NAPROXEN [Concomitant]
     Route: 048
     Dates: start: 20100310

REACTIONS (2)
  - GENERAL PHYSICAL HEALTH DETERIORATION [None]
  - HYPERBILIRUBINAEMIA [None]
